FAERS Safety Report 10553814 (Version 1)
Quarter: 2014Q4

REPORT INFORMATION
  Report Type: Spontaneous
  Country: US (occurrence: None)
  Receive Date: 20141023
  Receipt Date: 20141023
  Transmission Date: 20150529
  Serious: No
  Sender: FDA-Public Use
  Company Number: AP356-01267-SPO-US

PATIENT
  Age: 55 Year
  Sex: Female
  Weight: 78.6 kg

DRUGS (2)
  1. BELVIQ [Suspect]
     Active Substance: LORCASERIN HYDROCHLORIDE
     Indication: WEIGHT DECREASED
     Dosage: 20 MG, 2 IN 1 D, ORAL?08/14/2014 - 08/22/2014
     Route: 048
     Dates: start: 20140814, end: 20140822
  2. SYNTHROID [Concomitant]
     Active Substance: LEVOTHYROXINE SODIUM

REACTIONS (4)
  - Dizziness [None]
  - Nausea [None]
  - Dry mouth [None]
  - Chills [None]

NARRATIVE: CASE EVENT DATE: 20140825
